FAERS Safety Report 5370966-4 (Version None)
Quarter: 2007Q2

REPORT INFORMATION
  Report Type: 
  Country: None (occurrence: None)
  Receive Date: 20070626
  Receipt Date: 20070620
  Transmission Date: 20071010
  Serious: Yes (Other)
  Sender: FDA-Public Use
  Company Number: US-ROXANE LABORATORIES, INC-2007-BP-12160RO

PATIENT
  Age: 9 Year
  Sex: Male
  Weight: 24.3 kg

DRUGS (6)
  1. FLUTICASONE PROPIONATE [Suspect]
     Indication: RHINITIS ALLERGIC
     Route: 055
  2. MOMETASONE FUROATE [Suspect]
     Indication: ASTHMA
     Dosage: 50 MCG IN EACH NOSTRIL DAILY
     Route: 045
  3. LOPINAVIR/RITONAVIR [Suspect]
     Indication: HIV INFECTION CDC CATEGORY A1
     Dosage: 216/54 MG BID
     Route: 048
  4. DIDANOSINE [Concomitant]
     Indication: HIV INFECTION CDC CATEGORY A1
     Route: 048
  5. LAMIVUDINE [Concomitant]
     Indication: HIV INFECTION CDC CATEGORY A1
     Route: 048
  6. MONTELUKAST SODIUM [Concomitant]
     Indication: ASTHMA
     Route: 048

REACTIONS (6)
  - CUSHING'S SYNDROME [None]
  - CUSHINGOID [None]
  - DRUG INTERACTION [None]
  - HAIR GROWTH ABNORMAL [None]
  - SWELLING [None]
  - WEIGHT INCREASED [None]
